FAERS Safety Report 12793823 (Version 1)
Quarter: 2016Q3

REPORT INFORMATION
  Report Type: Spontaneous
  Country: US (occurrence: US)
  Receive Date: 20160929
  Receipt Date: 20160929
  Transmission Date: 20161109
  Serious: No
  Sender: FDA-Public Use
  Company Number: US-JAZZ-2016-US-011772

PATIENT
  Sex: Female

DRUGS (38)
  1. ADDERALL XR [Concomitant]
     Active Substance: AMPHETAMINE ASPARTATE\AMPHETAMINE SULFATE\DEXTROAMPHETAMINE SACCHARATE\DEXTROAMPHETAMINE SULFATE
  2. RELPAX [Concomitant]
     Active Substance: ELETRIPTAN HYDROBROMIDE
  3. TYLENOL EXTRA STRENGTH [Concomitant]
     Active Substance: ACETAMINOPHEN
  4. PRENATAL [Concomitant]
     Active Substance: VITAMINS
  5. IMPLANON [Concomitant]
     Active Substance: ETONOGESTREL
  6. VALACYCLOVIR HCL [Concomitant]
     Active Substance: VALACYCLOVIR HYDROCHLORIDE
  7. MELATONIN TR [Concomitant]
  8. XYREM [Suspect]
     Active Substance: SODIUM OXYBATE
     Dosage: DOSE ADJUSTMENTS
     Route: 048
     Dates: start: 201505, end: 201601
  9. FOLIC ACID. [Concomitant]
     Active Substance: FOLIC ACID
  10. ACETAMINOPHEN AND CODEINE NO.3 [Concomitant]
  11. PRENATAL MULTIVITAMINS [Concomitant]
     Active Substance: VITAMINS
  12. TOPIRAMATE. [Concomitant]
     Active Substance: TOPIRAMATE
  13. VALTREX [Concomitant]
     Active Substance: VALACYCLOVIR HYDROCHLORIDE
  14. IBUPROFEN. [Concomitant]
     Active Substance: IBUPROFEN
  15. TRINESSA [Concomitant]
     Active Substance: ETHINYL ESTRADIOL\NORGESTIMATE
  16. SERTRALINE HCL [Concomitant]
     Active Substance: SERTRALINE HYDROCHLORIDE
  17. PRENATAL VITAMINS [Concomitant]
     Active Substance: VITAMINS
  18. XYREM [Suspect]
     Active Substance: SODIUM OXYBATE
     Dosage: 2.25 G, BID
     Route: 048
     Dates: start: 201505, end: 201505
  19. XYREM [Suspect]
     Active Substance: SODIUM OXYBATE
     Dosage: 3.75 G, BID
     Route: 048
     Dates: start: 201601
  20. TOPAMAX [Concomitant]
     Active Substance: TOPIRAMATE
  21. MOMETASONE FUROATE. [Concomitant]
     Active Substance: MOMETASONE FUROATE
  22. PATANOL [Concomitant]
     Active Substance: OLOPATADINE HYDROCHLORIDE
  23. METHYLPHENIDATE. [Concomitant]
     Active Substance: METHYLPHENIDATE
  24. LACTAID ES [Concomitant]
  25. ADVIL [Concomitant]
     Active Substance: IBUPROFEN
  26. EPIPEN [Concomitant]
     Active Substance: EPINEPHRINE
  27. XYREM [Suspect]
     Active Substance: SODIUM OXYBATE
     Indication: CATAPLEXY
     Dosage: 3.75 G, BID
     Route: 048
     Dates: start: 201403, end: 2014
  28. HYDROXYZINE HCL [Concomitant]
     Active Substance: HYDROXYZINE HYDROCHLORIDE
  29. HALOPERIDOL. [Concomitant]
     Active Substance: HALOPERIDOL
  30. QUETIAPINE FUMARATE. [Concomitant]
     Active Substance: QUETIAPINE FUMARATE
  31. VITAMIN B12 TR [Concomitant]
  32. XYREM [Suspect]
     Active Substance: SODIUM OXYBATE
     Indication: NARCOLEPSY
     Dosage: 2.25 G, BID
     Route: 048
     Dates: start: 201402, end: 201403
  33. CALCIUM +D [Concomitant]
     Active Substance: CALCIUM\VITAMIN D
  34. FLUOXETINE HCL [Concomitant]
     Active Substance: FLUOXETINE HYDROCHLORIDE
  35. ADDERALL [Concomitant]
     Active Substance: AMPHETAMINE ASPARTATE\AMPHETAMINE SULFATE\DEXTROAMPHETAMINE SACCHARATE\DEXTROAMPHETAMINE SULFATE
  36. CLINDAMYCIN PHOSPHATE. [Concomitant]
     Active Substance: CLINDAMYCIN PHOSPHATE
  37. PAXIL [Concomitant]
     Active Substance: PAROXETINE HYDROCHLORIDE
  38. NEXPLANON [Concomitant]
     Active Substance: ETONOGESTREL

REACTIONS (1)
  - Food intolerance [Recovering/Resolving]
